FAERS Safety Report 12923296 (Version 2)
Quarter: 2016Q4

REPORT INFORMATION
  Report Type: Spontaneous
  Country: DE (occurrence: DE)
  Receive Date: 20161109
  Receipt Date: 20161117
  Transmission Date: 20170207
  Serious: Yes (Hospitalization, Other)
  Sender: FDA-Public Use
  Company Number: DE-GLAXOSMITHKLINE-DE2016GSK162813

PATIENT
  Sex: Female
  Weight: 55 kg

DRUGS (1)
  1. MALARONE [Suspect]
     Active Substance: ATOVAQUONE\PROGUANIL HYDROCHLORIDE
     Indication: PROPHYLAXIS
     Dosage: 1 DF, QD

REACTIONS (1)
  - Malaria [Unknown]
